FAERS Safety Report 17653954 (Version 1)
Quarter: 2020Q2

REPORT INFORMATION
  Report Type: Spontaneous
  Country: JP (occurrence: JP)
  Receive Date: 20200410
  Receipt Date: 20200410
  Transmission Date: 20200713
  Serious: Yes (Other)
  Sender: FDA-Public Use
  Company Number: JP-SUN PHARMACEUTICAL INDUSTRIES LTD-2020RR-243524

PATIENT
  Age: 86 Year
  Sex: Male

DRUGS (4)
  1. WARFARIN [Interacting]
     Active Substance: WARFARIN
     Indication: PRODUCT USED FOR UNKNOWN INDICATION
     Dosage: 2.0 - 2.5 MILLIGRAM, DAILY
     Route: 065
  2. FLUTAMIDE. [Interacting]
     Active Substance: FLUTAMIDE
     Indication: PROSTATIC SPECIFIC ANTIGEN INCREASED
     Dosage: 375 MILLIGRAM, DAILY
     Route: 065
  3. WARFARIN [Interacting]
     Active Substance: WARFARIN
     Dosage: 0.5 MILLIGRAM, DAILY
     Route: 065
  4. BICALUTAMIDE. [Suspect]
     Active Substance: BICALUTAMIDE
     Indication: PROSTATIC SPECIFIC ANTIGEN INCREASED
     Dosage: UNK
     Route: 065

REACTIONS (10)
  - Drug interaction [Unknown]
  - Ear haemorrhage [Recovered/Resolved]
  - Abdominal wall haematoma [Unknown]
  - Haematoma muscle [Unknown]
  - International normalised ratio increased [Recovering/Resolving]
  - Gingival bleeding [Recovered/Resolved]
  - Haematuria [Unknown]
  - Subcutaneous haematoma [Recovered/Resolved]
  - Drug ineffective [Unknown]
  - Urinary bladder haemorrhage [Unknown]
